FAERS Safety Report 13966187 (Version 3)
Quarter: 2017Q3

REPORT INFORMATION
  Report Type: Report from Study
  Country: US (occurrence: US)
  Receive Date: 20170913
  Receipt Date: 20170927
  Transmission Date: 20171128
  Serious: Yes (Hospitalization, Other)
  Sender: FDA-Public Use
  Company Number: US-BRISTOL-MYERS SQUIBB COMPANY-BMS-2017-080661

PATIENT
  Age: 64 Year
  Sex: Female
  Weight: 97 kg

DRUGS (1)
  1. APIXABAN [Suspect]
     Active Substance: APIXABAN
     Indication: DEEP VEIN THROMBOSIS
     Dosage: 5 MG, BID
     Route: 048
     Dates: start: 20170602, end: 20170901

REACTIONS (2)
  - Abdominal pain [Unknown]
  - Small intestinal obstruction [Unknown]

NARRATIVE: CASE EVENT DATE: 20170903
